FAERS Safety Report 6934478-6 (Version None)
Quarter: 2010Q3

REPORT INFORMATION
  Report Type: 
  Country: None (occurrence: None)
  Receive Date: 20100820
  Receipt Date: 20100720
  Transmission Date: 20110219
  Serious: No
  Sender: FDA-Public Use
  Company Number: US-BAYER-201018626BCC

PATIENT
  Age: 77 Year
  Sex: Male
  Weight: 70 kg

DRUGS (4)
  1. ALEVE (CAPLET) [Suspect]
     Indication: BACK PAIN
     Dosage: UNIT DOSE: 220 MG
     Route: 048
  2. ALEVE (CAPLET) [Suspect]
     Dosage: TOTAL DAILY DOSE: 220 MG  UNIT DOSE: 220 MG
     Route: 048
     Dates: start: 20100719
  3. ATENOLOL [Concomitant]
     Dosage: TOTAL DAILY DOSE: 0.5 DF
     Route: 048
  4. LIPITOR [Concomitant]
     Dosage: TOTAL DAILY DOSE: 0.5 DF
     Route: 048

REACTIONS (1)
  - NAUSEA [None]
